FAERS Safety Report 10948326 (Version 1)
Quarter: 2015Q1

REPORT INFORMATION
  Report Type: Spontaneous
  Country: US (occurrence: None)
  Receive Date: 20150323
  Receipt Date: 20150323
  Transmission Date: 20150721
  Serious: Yes (Life-Threatening)
  Sender: FDA-Public Use
  Company Number: None

PATIENT
  Age: 2 Month
  Sex: Male
  Weight: 2.4 kg

DRUGS (20)
  1. CEFTAZIDIME. [Concomitant]
     Active Substance: CEFTAZIDIME
  2. SODIUM CHLORIDE. [Concomitant]
     Active Substance: SODIUM CHLORIDE
  3. BUDESONIDE. [Concomitant]
     Active Substance: BUDESONIDE
  4. CHOLECALCIFEROL [Concomitant]
     Active Substance: CHOLECALCIFEROL
  5. LORAZEPAM. [Concomitant]
     Active Substance: LORAZEPAM
  6. ACETAMINOPHEN. [Concomitant]
     Active Substance: ACETAMINOPHEN
  7. TPN/INTRALIPID [Concomitant]
  8. XOPENEX [Suspect]
     Active Substance: LEVALBUTEROL HYDROCHLORIDE
     Indication: CHRONIC DISEASE
     Dosage: NEBULIZED
     Dates: start: 20141028, end: 20141028
  9. DEXAMETHASONE. [Concomitant]
     Active Substance: DEXAMETHASONE
  10. VANCOMYCIN [Concomitant]
     Active Substance: VANCOMYCIN
  11. HYDROMORPHONE PCA [Concomitant]
  12. CHLOROTHIAZIDE. [Concomitant]
     Active Substance: CHLOROTHIAZIDE
  13. IV FLUIDS [Concomitant]
     Active Substance: UNSPECIFIED INGREDIENT
  14. XOPENEX [Suspect]
     Active Substance: LEVALBUTEROL HYDROCHLORIDE
     Indication: LUNG DISORDER
     Dosage: NEBULIZED
     Dates: start: 20141028, end: 20141028
  15. FERROUS SULFATE [Concomitant]
     Active Substance: FERROUS SULFATE\FERROUS SULFATE, DRIED
  16. FUROSEMIDE. [Concomitant]
     Active Substance: FUROSEMIDE
  17. HYDROCORTISONE. [Concomitant]
     Active Substance: HYDROCORTISONE
  18. IPRATROPIUM [Concomitant]
     Active Substance: IPRATROPIUM
  19. POTASSIUM CHLORIDE. [Concomitant]
     Active Substance: POTASSIUM CHLORIDE
  20. OCULAR LUBRICANT [Concomitant]

REACTIONS (2)
  - Oxygen saturation decreased [None]
  - Hypercapnia [None]

NARRATIVE: CASE EVENT DATE: 20141029
